FAERS Safety Report 9197632 (Version 2)
Quarter: 2013Q2

REPORT INFORMATION
  Report Type: Spontaneous
  Country: US (occurrence: US)
  Receive Date: 20130328
  Receipt Date: 20130503
  Transmission Date: 20140414
  Serious: Yes (Other)
  Sender: FDA-Public Use
  Company Number: US-JNJFOC-20130314418

PATIENT
  Sex: Female
  Weight: 72.58 kg

DRUGS (2)
  1. MOTRIN IB [Suspect]
     Route: 048
  2. MOTRIN IB [Suspect]
     Indication: PAIN
     Route: 048
     Dates: end: 201209

REACTIONS (8)
  - Asthma [Recovered/Resolved]
  - Therapeutic response delayed [Unknown]
  - Hypersensitivity [Recovered/Resolved]
  - Dizziness [Recovered/Resolved]
  - Presyncope [Recovered/Resolved]
  - Nasal congestion [None]
  - Drug ineffective [None]
  - Rhinorrhoea [None]
